FAERS Safety Report 20666972 (Version 4)
Quarter: 2022Q3

REPORT INFORMATION
  Report Type: Spontaneous
  Country: US (occurrence: US)
  Receive Date: 20220404
  Receipt Date: 20220630
  Transmission Date: 20221027
  Serious: No
  Sender: FDA-Public Use
  Company Number: US-NOVARTISTESTPH-NVSC2022US075062

PATIENT
  Sex: Male

DRUGS (1)
  1. PATADAY [Suspect]
     Active Substance: OLOPATADINE HYDROCHLORIDE
     Indication: Product used for unknown indication
     Dosage: UNK, PATADAY (2 X 2.5 ML TWIN PACK (OLOPATADINE HCL 0.7%))
     Route: 065

REACTIONS (2)
  - Eye discharge [Not Recovered/Not Resolved]
  - Drug ineffective [Unknown]
